FAERS Safety Report 5804156-5 (Version None)
Quarter: 2008Q3

REPORT INFORMATION
  Report Type: 
  Country: None (occurrence: None)
  Receive Date: 20080702
  Receipt Date: 20070925
  Transmission Date: 20090109
  Serious: Yes (Hospitalization, Other)
  Sender: FDA-Public Use
  Company Number: HQWYE326126SEP07

PATIENT
  Age: 92 Year
  Sex: Female

DRUGS (1)
  1. IBUPROFEN TABLETS [Suspect]
     Indication: ARTHRITIS
     Dosage: 9 TABLETS DAILY AS PRESCRIBED BY DOCTOR, ORAL ; 3 TABLETS DAILY, ORAL ; 3 TABLET DAILY, ORAL
     Route: 048
     Dates: start: 20030101

REACTIONS (1)
  - HAEMORRHAGE [None]
